FAERS Safety Report 11537539 (Version 1)
Quarter: 2015Q3

REPORT INFORMATION
  Report Type: Spontaneous
  Country: PT (occurrence: PT)
  Receive Date: 20150922
  Receipt Date: 20150922
  Transmission Date: 20151125
  Serious: Yes (Other)
  Sender: FDA-Public Use
  Company Number: PT-DEP_12673_2015

PATIENT
  Age: 45 Year
  Sex: Female

DRUGS (7)
  1. PALEXIA [Suspect]
     Active Substance: TAPENTADOL HYDROCHLORIDE
     Indication: SCIATICA
     Route: 048
     Dates: start: 20150228
  2. PALEXIA [Suspect]
     Active Substance: TAPENTADOL HYDROCHLORIDE
     Route: 048
  3. ELONTRIL [Concomitant]
     Active Substance: BUPROPION HYDROCHLORIDE
  4. GABAPENTIN. [Concomitant]
     Active Substance: GABAPENTIN
  5. DICLOFENAC [Concomitant]
     Active Substance: DICLOFENAC
     Dosage: DF, ^IN SOS^
  6. DULOXETINE. [Concomitant]
     Active Substance: DULOXETINE
  7. TRAMADOL/PARACETAMOL [Concomitant]
     Active Substance: ACETAMINOPHEN\TRAMADOL
     Dosage: DF, ^IN SOS^

REACTIONS (1)
  - Diplopia [Recovered/Resolved]
